FAERS Safety Report 7503736-9 (Version None)
Quarter: 2011Q2

REPORT INFORMATION
  Report Type: 
  Country: None (occurrence: None)
  Receive Date: 20110525
  Receipt Date: 20110415
  Transmission Date: 20111010
  Serious: Yes (Other)
  Sender: FDA-Public Use
  Company Number: PHHY2011US38854

PATIENT
  Age: 65 Year
  Sex: Male

DRUGS (1)
  1. VINORELBINE [Suspect]
     Dosage: 55.5 MG, UNK
     Route: 042

REACTIONS (5)
  - ACUTE CORONARY SYNDROME [None]
  - MYOCARDIAL INFARCTION [None]
  - BRONCHOSPASM [None]
  - DYSPNOEA [None]
  - HYPOXIA [None]
